FAERS Safety Report 20946952 (Version 5)
Quarter: 2023Q4

REPORT INFORMATION
  Report Type: Report from Study
  Country: TH (occurrence: TH)
  Receive Date: 20220610
  Receipt Date: 20231204
  Transmission Date: 20240110
  Serious: Yes (Other)
  Sender: FDA-Public Use
  Company Number: TH-TAKEDA-2022TUS030804

PATIENT
  Age: 43 Year
  Sex: Female

DRUGS (1)
  1. VEDOLIZUMAB [Suspect]
     Active Substance: VEDOLIZUMAB
     Indication: Colitis ulcerative
     Dosage: 300 MILLIGRAM
     Route: 042
     Dates: start: 20210713

REACTIONS (4)
  - Clostridium difficile infection [Unknown]
  - Nosocomial infection [Unknown]
  - COVID-19 [Unknown]
  - Arthralgia [Unknown]

NARRATIVE: CASE EVENT DATE: 20220402
